FAERS Safety Report 4394035-5 (Version None)
Quarter: 2004Q3

REPORT INFORMATION
  Report Type: 
  Country: None (occurrence: None)
  Receive Date: 20040709
  Receipt Date: 20030130
  Transmission Date: 20050211
  Serious: Yes (Hospitalization, Disabling, Other)
  Sender: FDA-Public Use
  Company Number: US-MERCK-0302USA00098

PATIENT
  Age: 77 Year
  Sex: Male
  Weight: 90 kg

DRUGS (23)
  1. IMURAN [Concomitant]
     Route: 065
  2. CHLORACON [Concomitant]
     Route: 065
  3. CELEBREX [Concomitant]
     Route: 065
  4. TAGAMET [Concomitant]
     Route: 065
  5. CYANOCOBALAMIN [Concomitant]
     Route: 065
  6. LANOXIN [Concomitant]
     Route: 065
  7. TIAZAC [Concomitant]
     Route: 065
  8. CARTIA (DILTIAZEM HYDROCHLORIDE) [Concomitant]
     Route: 065
  9. FOLIC ACID [Concomitant]
     Route: 065
  10. LASIX [Concomitant]
     Route: 065
  11. GLIPIZIDE [Concomitant]
     Route: 065
  12. MOTRIN [Concomitant]
     Route: 065
     Dates: start: 19900101, end: 20010101
  13. INSULIN [Concomitant]
     Route: 065
  14. INSULIN HUMAN, ISOPHANE [Concomitant]
     Route: 065
  15. IMDUR [Concomitant]
     Route: 065
  16. METHOTREXATE [Concomitant]
     Route: 065
     Dates: start: 20010205
  17. NIACIN [Concomitant]
     Route: 065
  18. POTASSIUM (UNSPECIFIED) [Concomitant]
     Route: 065
  19. PREDNISONE [Concomitant]
     Route: 065
  20. VIOXX [Suspect]
     Indication: RHEUMATOID ARTHRITIS
     Route: 048
     Dates: start: 19990101, end: 20010910
  21. VIOXX [Suspect]
     Indication: OSTEOARTHRITIS
     Route: 048
     Dates: start: 19990101, end: 20010910
  22. FLOMAX [Concomitant]
     Route: 065
     Dates: start: 19990101
  23. VITAMIN E [Concomitant]
     Route: 065

REACTIONS (90)
  - ABDOMINAL PAIN [None]
  - ANAEMIA [None]
  - ANGINA PECTORIS [None]
  - ANGINA UNSTABLE [None]
  - AORTIC ANEURYSM [None]
  - AORTIC DISORDER [None]
  - AORTIC VALVE SCLEROSIS [None]
  - ARRHYTHMIA [None]
  - ARTHRALGIA [None]
  - ASTHENIA [None]
  - ATAXIA [None]
  - ATRIAL FIBRILLATION [None]
  - BACK PAIN [None]
  - BENIGN PROSTATIC HYPERPLASIA [None]
  - BLINDNESS TRANSIENT [None]
  - BLINDNESS UNILATERAL [None]
  - BLOOD UREA INCREASED [None]
  - BRADYCARDIA [None]
  - CARDIAC FAILURE CONGESTIVE [None]
  - CARDIAC VALVE VEGETATION [None]
  - CARDIOVASCULAR DECONDITIONING [None]
  - CEREBROVASCULAR ACCIDENT [None]
  - CEREBROVASCULAR DISORDER [None]
  - CHEST PAIN [None]
  - CHILLS [None]
  - CLOSED HEAD INJURY [None]
  - CORONARY ARTERY ATHEROSCLEROSIS [None]
  - CORONARY ARTERY DISEASE [None]
  - CORONARY ARTERY OCCLUSION [None]
  - DEHYDRATION [None]
  - DIABETES MELLITUS NON-INSULIN-DEPENDENT [None]
  - DIARRHOEA [None]
  - DIASTOLIC DYSFUNCTION [None]
  - DILATATION ATRIAL [None]
  - DIZZINESS [None]
  - DRUG TOXICITY [None]
  - DYSPNOEA [None]
  - ELECTROCARDIOGRAM POOR R-WAVE PROGRESSION [None]
  - EMBOLISM [None]
  - EMOTIONAL DISTRESS [None]
  - EXTRASYSTOLES [None]
  - FALL [None]
  - FEELING ABNORMAL [None]
  - FEELING HOT AND COLD [None]
  - FLANK PAIN [None]
  - GAIT DISTURBANCE [None]
  - GASTROINTESTINAL MOTILITY DISORDER [None]
  - HEART RATE IRREGULAR [None]
  - INJURY [None]
  - ISCHAEMIA [None]
  - JOINT STIFFNESS [None]
  - LEUKOCYTOSIS [None]
  - LOSS OF EMPLOYMENT [None]
  - MALAISE [None]
  - MITRAL VALVE CALCIFICATION [None]
  - MITRAL VALVE INCOMPETENCE [None]
  - MITRAL VALVE STENOSIS [None]
  - MOTOR DYSFUNCTION [None]
  - MUSCULAR WEAKNESS [None]
  - MYOCARDIAL INFARCTION [None]
  - MYOCARDIAL ISCHAEMIA [None]
  - NAUSEA [None]
  - NECK PAIN [None]
  - OEDEMA PERIPHERAL [None]
  - OESOPHAGEAL DISORDER [None]
  - ORAL CANDIDIASIS [None]
  - PAIN [None]
  - PNEUMONIA [None]
  - POLYMYALGIA RHEUMATICA [None]
  - POLYURIA [None]
  - PULMONARY EMBOLISM [None]
  - PULMONARY TOXICITY [None]
  - PYREXIA [None]
  - SKIN ULCER [None]
  - SLEEP APNOEA SYNDROME [None]
  - SWELLING [None]
  - TEMPORAL ARTERITIS [None]
  - THROMBOSIS [None]
  - TRICUSPID VALVE INCOMPETENCE [None]
  - URINARY TRACT INFECTION [None]
  - VASCULAR PSEUDOANEURYSM [None]
  - VASCULITIS [None]
  - VENTRICULAR DYSFUNCTION [None]
  - VENTRICULAR HYPERTROPHY [None]
  - VISION BLURRED [None]
  - VISUAL ACUITY REDUCED [None]
  - VISUAL DISTURBANCE [None]
  - VISUAL FIELD DEFECT [None]
  - VOMITING [None]
  - WANDERING PACEMAKER [None]
